FAERS Safety Report 6696249-8 (Version None)
Quarter: 2010Q2

REPORT INFORMATION
  Report Type: 
  Country: None (occurrence: None)
  Receive Date: 20100426
  Receipt Date: 20100319
  Transmission Date: 20101027
  Serious: Yes (Death)
  Sender: FDA-Public Use
  Company Number: US-BAXTER-2010BH001578

PATIENT
  Age: 81 Year
  Sex: Female

DRUGS (16)
  1. HEPARIN SODIUM INJECTION [Suspect]
     Indication: THROMBOSIS PROPHYLAXIS
     Route: 058
     Dates: start: 20070201, end: 20070301
  2. HEPARIN SODIUM INJECTION [Suspect]
     Indication: VENA CAVA FILTER INSERTION
     Route: 058
     Dates: start: 20070201, end: 20070301
  3. HEPARIN SODIUM INJECTION [Suspect]
     Route: 050
     Dates: start: 20070312, end: 20070312
  4. HEPARIN SODIUM INJECTION [Suspect]
     Route: 050
     Dates: start: 20070312, end: 20070312
  5. HEPARIN SODIUM INJECTION [Suspect]
     Route: 050
     Dates: start: 20070313, end: 20070313
  6. HEPARIN SODIUM INJECTION [Suspect]
     Route: 050
     Dates: start: 20070313, end: 20070313
  7. HEPARIN SODIUM INJECTION [Suspect]
     Route: 058
     Dates: start: 20070201, end: 20070301
  8. HEPARIN SODIUM INJECTION [Suspect]
     Route: 058
     Dates: start: 20070201, end: 20070301
  9. HEPARIN SODIUM INJECTION [Suspect]
     Route: 042
     Dates: start: 20070312, end: 20070312
  10. HEPARIN SODIUM INJECTION [Suspect]
     Route: 042
     Dates: start: 20070312, end: 20070312
  11. LOVENOX [Suspect]
     Indication: DRUG USE FOR UNKNOWN INDICATION
     Route: 065
  12. XANAX [Concomitant]
     Indication: DRUG USE FOR UNKNOWN INDICATION
     Route: 065
  13. ATENOLOL [Concomitant]
     Indication: DRUG USE FOR UNKNOWN INDICATION
     Route: 065
  14. SYNTHROID [Concomitant]
     Indication: DRUG USE FOR UNKNOWN INDICATION
     Route: 065
  15. TAMSULOSIN HCL [Concomitant]
     Indication: DRUG USE FOR UNKNOWN INDICATION
     Route: 065
  16. PREDNISONE [Concomitant]
     Indication: MYALGIA
     Route: 065

REACTIONS (8)
  - CARDIAC ARREST [None]
  - DEEP VEIN THROMBOSIS [None]
  - DRUG HYPERSENSITIVITY [None]
  - HYPOTENSION [None]
  - PULMONARY EMBOLISM [None]
  - PUNCTURE SITE HAEMORRHAGE [None]
  - THROMBOCYTOPENIA [None]
  - VENA CAVA FILTER INSERTION [None]
